FAERS Safety Report 14727512 (Version 9)
Quarter: 2019Q2

REPORT INFORMATION
  Report Type: Report from Study
  Country: CA (occurrence: CA)
  Receive Date: 20180406
  Receipt Date: 20190418
  Transmission Date: 20190711
  Serious: Yes (Other)
  Sender: FDA-Public Use
  Company Number: PHHY2018CA052640

PATIENT
  Sex: Female

DRUGS (4)
  1. INDOCID [Concomitant]
     Active Substance: INDOMETHACIN
     Indication: PRODUCT USED FOR UNKNOWN INDICATION
     Dosage: UNK UNK, QD
     Route: 048
     Dates: start: 201709
  2. HEPATITIS B VACCINE [Concomitant]
     Active Substance: HEPATITIS B VIRUS VACCINE
     Indication: HEPATITIS B IMMUNISATION
     Dosage: UNK
     Route: 065
     Dates: start: 20190410
  3. ERELZI [Suspect]
     Active Substance: ETANERCEPT-SZZS
     Indication: ANKYLOSING SPONDYLITIS
     Dosage: 50 MG, QW
     Route: 058
     Dates: start: 20180322
  4. IBUPROFEN. [Concomitant]
     Active Substance: IBUPROFEN
     Indication: ANKYLOSING SPONDYLITIS
     Dosage: UNK UNK, PRN
     Route: 048

REACTIONS (18)
  - Blindness transient [Unknown]
  - Hypokinesia [Unknown]
  - Injection site vesicles [Not Recovered/Not Resolved]
  - Injection site bruising [Unknown]
  - Device pacing issue [Unknown]
  - Injection site pain [Unknown]
  - Vomiting [Unknown]
  - Fear of injection [Unknown]
  - Malaise [Unknown]
  - Injection site erythema [Recovering/Resolving]
  - Musculoskeletal pain [Not Recovered/Not Resolved]
  - Injection site paraesthesia [Recovered/Resolved]
  - Presyncope [Unknown]
  - Injection site plaque [Recovered/Resolved]
  - Sinusitis [Unknown]
  - Injection site hypoaesthesia [Recovered/Resolved]
  - Ankylosing spondylitis [Unknown]
  - Injection site pruritus [Unknown]

NARRATIVE: CASE EVENT DATE: 2018
